FAERS Safety Report 20947269 (Version 3)
Quarter: 2022Q2

REPORT INFORMATION
  Report Type: Spontaneous
  Country: US (occurrence: US)
  Receive Date: 20220610
  Receipt Date: 20220630
  Transmission Date: 20220721
  Serious: Yes (Life-Threatening)
  Sender: FDA-Public Use
  Company Number: US-MALLINCKRODT-T202202868

PATIENT
  Age: 13 Month
  Sex: Female
  Weight: 10 kg

DRUGS (2)
  1. UVADEX [Suspect]
     Active Substance: METHOXSALEN
     Indication: Graft versus host disease
     Dosage: 3.5 MILLILITER, TWICE A WEEK (EXTRACORPOREAL)
     Route: 050
     Dates: start: 20220531
  2. ANTICOAGULANT CITRATE DEXTROSE SOLUTION (ACD) NOS [Concomitant]
     Active Substance: CITRIC ACID MONOHYDRATE\DEXTROSE\SODIUM CITRATE
     Indication: Anticoagulant therapy
     Dosage: UNK (A/C RATIO- 16:1)
     Route: 065

REACTIONS (3)
  - Hypotension [Recovered/Resolved]
  - Haematocrit decreased [Not Recovered/Not Resolved]
  - Product use in unapproved indication [Unknown]

NARRATIVE: CASE EVENT DATE: 20220531
